FAERS Safety Report 15315912 (Version 1)
Quarter: 2018Q3

REPORT INFORMATION
  Report Type: Spontaneous
  Country: US (occurrence: US)
  Receive Date: 20180816
  Receipt Date: 20180816
  Transmission Date: 20181010
  Serious: Yes (Disabling)
  Sender: FDA-Public Use
  Company Number: None

PATIENT
  Age: 26 Year
  Sex: Female
  Weight: 90.72 kg

DRUGS (3)
  1. SUMATRIPTAN. [Concomitant]
     Active Substance: SUMATRIPTAN
  2. VITAMIN B12 [Concomitant]
     Active Substance: CYANOCOBALAMIN
  3. MIRENA [Suspect]
     Active Substance: LEVONORGESTREL
     Dates: start: 20160401, end: 20170401

REACTIONS (2)
  - Visual impairment [None]
  - Migraine [None]

NARRATIVE: CASE EVENT DATE: 20170101
